FAERS Safety Report 4485600-5 (Version None)
Quarter: 2004Q4

REPORT INFORMATION
  Report Type: 
  Country: None (occurrence: None)
  Receive Date: 20041026
  Receipt Date: 20041020
  Transmission Date: 20050328
  Serious: Yes (Death, Hospitalization)
  Sender: FDA-Public Use
  Company Number: US-JNJFOC-20041006580

PATIENT
  Sex: Female

DRUGS (1)
  1. RISPERDAL [Suspect]
     Indication: DRUG USE FOR UNKNOWN INDICATION
     Route: 049

REACTIONS (5)
  - ANOREXIA NERVOSA [None]
  - CHEST PAIN [None]
  - DEHYDRATION [None]
  - RENAL CELL CARCINOMA STAGE UNSPECIFIED [None]
  - WEIGHT DECREASED [None]
